FAERS Safety Report 24414777 (Version 1)
Quarter: 2024Q4

REPORT INFORMATION
  Report Type: Spontaneous
  Country: US (occurrence: US)
  Receive Date: 20241009
  Receipt Date: 20241009
  Transmission Date: 20250114
  Serious: Yes (Hospitalization)
  Sender: ABBVIE
  Company Number: US-ABBVIE-5952112

PATIENT
  Sex: Male
  Weight: 40.4 kg

DRUGS (3)
  1. LEUPROLIDE [Suspect]
     Active Substance: LEUPROLIDE
     Indication: Precocious puberty
     Dosage: 1 KIT, THERAPY END DATE 2024
     Route: 030
     Dates: start: 20240924
  2. LEUPROLIDE [Suspect]
     Active Substance: LEUPROLIDE
     Indication: Epiphyses premature fusion
     Dosage: 1 KIT
     Route: 030
     Dates: start: 20230714, end: 202403
  3. GENOTROPIN [Concomitant]
     Active Substance: SOMATROPIN
     Indication: Product used for unknown indication
     Dosage: GENOTROPIN 12 MG
     Route: 058
     Dates: start: 20240318

REACTIONS (2)
  - Hospitalisation [Unknown]
  - Growth retardation [Unknown]

NARRATIVE: CASE EVENT DATE: 20240924
